FAERS Safety Report 6718953-5 (Version None)
Quarter: 2010Q2

REPORT INFORMATION
  Report Type: 
  Country: None (occurrence: None)
  Receive Date: 20100511
  Receipt Date: 20100505
  Transmission Date: 20101027
  Serious: Yes (Other)
  Sender: FDA-Public Use
  Company Number: US-BAYER-201016359NA

PATIENT
  Age: 28 Year
  Sex: Female

DRUGS (4)
  1. YAZ [Suspect]
     Indication: DRUG USE FOR UNKNOWN INDICATION
     Route: 048
     Dates: start: 20040401
  2. YAZ [Suspect]
     Route: 048
     Dates: start: 20080801
  3. YASMIN [Suspect]
     Indication: DRUG USE FOR UNKNOWN INDICATION
     Route: 048
     Dates: start: 20040401
  4. YASMIN [Suspect]
     Route: 048
     Dates: start: 20080801

REACTIONS (1)
  - MYOCARDIAL INFARCTION [None]
